FAERS Safety Report 24670362 (Version 1)
Quarter: 2024Q4

REPORT INFORMATION
  Report Type: Spontaneous
  Country: US (occurrence: US)
  Receive Date: 20241127
  Receipt Date: 20241127
  Transmission Date: 20250115
  Serious: Yes (Other)
  Sender: AMGEN
  Company Number: US-AMGEN-USASP2024227638

PATIENT
  Age: 11 Year
  Sex: Male

DRUGS (3)
  1. PREDNISONE [Suspect]
     Active Substance: PREDNISONE
     Indication: Rash
     Dosage: 60 MILLIGRAM, QD
     Route: 048
  2. TRIENTINE HYDROCHLORIDE [Concomitant]
     Active Substance: TRIENTINE HYDROCHLORIDE
     Dosage: 500 MILLIGRAM, BID
  3. ZINC GLUCONATE [Concomitant]
     Active Substance: ZINC GLUCONATE
     Dosage: 200 MILLIGRAM, BID

REACTIONS (3)
  - Cutaneous vasculitis [Unknown]
  - IgA nephropathy [Unknown]
  - Therapy non-responder [Unknown]
